FAERS Safety Report 15317311 (Version 4)
Quarter: 2018Q4

REPORT INFORMATION
  Report Type: Report from Study
  Country: US (occurrence: US)
  Receive Date: 20180824
  Receipt Date: 20181015
  Transmission Date: 20190204
  Serious: Yes (Hospitalization, Other)
  Sender: FDA-Public Use
  Company Number: US-BAYER-2018-155862

PATIENT
  Age: 64 Year
  Sex: Male
  Weight: 88.62 kg

DRUGS (2)
  1. REGORAFENIB. [Suspect]
     Active Substance: REGORAFENIB
     Indication: HEPATOCELLULAR CARCINOMA
     Dosage: 40 MG, FREQUENCY PER STUDY
     Route: 048
     Dates: start: 20180710, end: 20180825
  2. SILDENAFIL. [Suspect]
     Active Substance: SILDENAFIL
     Indication: HEPATOCELLULAR CARCINOMA
     Dosage: 100 MG, FREQUENCY PER STUDY
     Route: 048
     Dates: start: 20180710, end: 20180825

REACTIONS (10)
  - Feeling jittery [None]
  - Hypoglycaemia [None]
  - Pyrexia [None]
  - Pyrexia [None]
  - Abdominal discomfort [None]
  - Acute kidney injury [None]
  - Abdominal distension [None]
  - Abdominal pain [None]
  - Chest wall abscess [None]
  - Asthenia [None]

NARRATIVE: CASE EVENT DATE: 20180813
